FAERS Safety Report 8772717 (Version 2)
Quarter: 2013Q4

REPORT INFORMATION
  Report Type: Spontaneous
  Country: US (occurrence: US)
  Receive Date: 20120905
  Receipt Date: 20131101
  Transmission Date: 20140711
  Serious: No
  Sender: FDA-Public Use
  Company Number: US-009507513-1209USA000946

PATIENT
  Age: 16 Year
  Sex: Female

DRUGS (3)
  1. SAPHRIS [Suspect]
     Indication: BIPOLAR DISORDER
     Dosage: 20 MG, QD
     Route: 060
     Dates: start: 201205
  2. SAPHRIS [Suspect]
     Dosage: 15 MG, QD
     Route: 060
  3. ADDERALL TABLETS [Concomitant]

REACTIONS (1)
  - Dystonia [Recovering/Resolving]
